FAERS Safety Report 9174147 (Version 1)
Quarter: 2013Q1

REPORT INFORMATION
  Report Type: Spontaneous
  Country: IT (occurrence: None)
  Receive Date: 20130315
  Receipt Date: 20130315
  Transmission Date: 20140127
  Serious: Yes (Other)
  Sender: FDA-Public Use
  Company Number: AUR-APL-2013-02221

PATIENT
  Age: 66 Year
  Sex: Male

DRUGS (4)
  1. CEFTRIAXONE [Suspect]
     Indication: BRONCHITIS
     Dosage: (1000 MG, TOTAL) INTRAMASCULAR
     Route: 030
     Dates: start: 20130304, end: 20130304
  2. SPIRIVA(TIOTROPIUM BROMIDE) [Concomitant]
  3. BECLOMETASONE DIPROPIONATE(BECLOMETASONE DIPROPIONATE) [Concomitant]
  4. FORMOTEROL FUMARATE DIHYDRATE(FORMOTEROL FUMARATE) :1) UNKNOWN [Concomitant]

REACTIONS (2)
  - Urticaria [None]
  - Blood pressure increased [None]
